FAERS Safety Report 10043281 (Version 1)
Quarter: 2014Q1

REPORT INFORMATION
  Report Type: Spontaneous
  Country: US (occurrence: None)
  Receive Date: 20140327
  Receipt Date: 20140327
  Transmission Date: 20141002
  Serious: Yes (Other)
  Sender: FDA-Public Use
  Company Number: None

PATIENT
  Age: 58 Year
  Sex: Female
  Weight: 56.7 kg

DRUGS (1)
  1. COMBIVENT RESPIMAT [Suspect]
     Indication: ASTHMA
     Dosage: 2 PUFFS?
     Route: 055
     Dates: start: 20140312, end: 20140326

REACTIONS (1)
  - Device difficult to use [None]
